FAERS Safety Report 7192002-X (Version None)
Quarter: 2010Q4

REPORT INFORMATION
  Report Type: 
  Country: None (occurrence: None)
  Receive Date: 20101223
  Receipt Date: 20101217
  Transmission Date: 20110411
  Serious: Yes (Life-Threatening, Hospitalization, Other)
  Sender: FDA-Public Use
  Company Number: PHHO2009CA06797

PATIENT
  Sex: Male
  Weight: 76 kg

DRUGS (9)
  1. AMN107 AMN+CAP [Suspect]
     Indication: CHRONIC MYELOID LEUKAEMIA
     Dosage: 400MG BID
     Route: 048
     Dates: start: 20080714, end: 20090601
  2. AMN107 AMN+CAP [Suspect]
     Dosage: 400 MG, QD
     Route: 048
     Dates: start: 20090617, end: 20090703
  3. AMN107 AMN+CAP [Suspect]
     Dosage: 400 MG, BID
     Route: 048
     Dates: start: 20090704, end: 20090805
  4. AMN107 AMN+CAP [Suspect]
     Dosage: UNK
     Route: 048
     Dates: start: 20090806, end: 20090827
  5. AMN107 AMN+CAP [Suspect]
     Dosage: UNK
     Dates: start: 20090828
  6. ASPIRIN [Concomitant]
     Indication: HEADACHE
  7. KEPPRA [Concomitant]
     Indication: CONVULSION
  8. LACTULOSE [Concomitant]
     Indication: CONSTIPATION
     Dosage: UNK
  9. BETA BLOCKING AGENTS [Concomitant]

REACTIONS (14)
  - ACUTE MYOCARDIAL INFARCTION [None]
  - ANGINA PECTORIS [None]
  - ANGIOPLASTY [None]
  - BLOOD PRESSURE INCREASED [None]
  - BRADYCARDIA [None]
  - CARDIAC MURMUR [None]
  - CATHETERISATION CARDIAC [None]
  - CHEST PAIN [None]
  - CORONARY ARTERY DISEASE [None]
  - DYSLIPIDAEMIA [None]
  - HYPERCHOLESTEROLAEMIA [None]
  - MYOCARDIAL ISCHAEMIA [None]
  - PULSE ABNORMAL [None]
  - STENT PLACEMENT [None]
